FAERS Safety Report 23448042 (Version 1)
Quarter: 2024Q1

REPORT INFORMATION
  Report Type: Spontaneous
  Country: FR (occurrence: FR)
  Receive Date: 20240126
  Receipt Date: 20240126
  Transmission Date: 20240410
  Serious: Yes (Death, Hospitalization, Disabling, Other)
  Sender: FDA-Public Use
  Company Number: None

PATIENT
  Age: 68 Year
  Sex: Male

DRUGS (18)
  1. COMIRNATY (RAXTOZINAMERAN) [Suspect]
     Active Substance: RAXTOZINAMERAN
     Indication: COVID-19 immunisation
     Dosage: DOSE 1, SINGLE
     Route: 030
     Dates: start: 20231011, end: 20231011
  2. DOCETAXEL [Suspect]
     Active Substance: DOCETAXEL\DOCETAXEL ANHYDROUS
     Indication: Prostate cancer
     Dosage: 60 MG/M2, EVERY 3 WEEKS
     Route: 042
     Dates: start: 20230923, end: 20231204
  3. ESOMEPRAZOLE [Suspect]
     Active Substance: ESOMEPRAZOLE
     Indication: Prophylaxis
     Dosage: 80 MG, 1X/DAY
     Route: 048
  4. EZETIMIBE [Suspect]
     Active Substance: EZETIMIBE
     Indication: Dyslipidaemia
     Dosage: 10 MG, 1X/DAY
     Route: 048
  5. PREDNISONE [Suspect]
     Active Substance: PREDNISONE
     Indication: Prostate cancer
     Dosage: 1 DF, 1X/DAY
     Route: 048
     Dates: start: 20230923
  6. ZYTIGA [Suspect]
     Active Substance: ABIRATERONE ACETATE
     Indication: Prostate cancer
     Dosage: 1 G, 1X/DAY (2 TABLETS PER DAY IN A SINGLE DOSE)
     Route: 048
     Dates: start: 20230923
  7. ZOPICLONE [Suspect]
     Active Substance: ZOPICLONE
     Indication: Insomnia
     Dosage: 7.5 MG, 1X/DAY
     Route: 048
     Dates: start: 20230606
  8. PREGABALIN [Suspect]
     Active Substance: PREGABALIN
     Indication: Pain
     Dosage: 300 MG, 1X/DAY
     Route: 048
     Dates: start: 20230830
  9. VALSARTAN [Suspect]
     Active Substance: VALSARTAN
     Indication: Hypertension
     Dosage: 80 MG, 1X/DAY
     Route: 048
     Dates: start: 20231004
  10. ERYTHROPOIETIN [Suspect]
     Active Substance: ERYTHROPOIETIN
     Dosage: 1 DF, WEEKLY (EVERY FRIDAY)
     Route: 058
     Dates: start: 20230922
  11. AMLODIPINE [Suspect]
     Active Substance: AMLODIPINE BESYLATE
     Dosage: 5 MG, 1X/DAY IN THE MORNING
     Route: 048
  12. POLYETHYLENE GLYCOLS [Concomitant]
     Active Substance: POLYETHYLENE GLYCOLS
  13. ONDANSETRON [Concomitant]
     Active Substance: ONDANSETRON
  14. OXAZEPAM [Concomitant]
     Active Substance: OXAZEPAM
  15. DAFALGAN [Concomitant]
     Active Substance: ACETAMINOPHEN
  16. FIRMAGON [Concomitant]
     Active Substance: DEGARELIX ACETATE
     Dosage: FOR 28 DAYS
     Route: 058
  17. TAXOTERE [Concomitant]
     Active Substance: DOCETAXEL
  18. LENOGRASTIM [Concomitant]
     Active Substance: LENOGRASTIM
     Dosage: UNK

REACTIONS (12)
  - Acquired haemophilia [Fatal]
  - Shock haemorrhagic [Fatal]
  - Haematoma [Unknown]
  - Hyperkalaemia [Unknown]
  - Acute kidney injury [Unknown]
  - General physical health deterioration [Unknown]
  - Inflammation [Unknown]
  - Pyrexia [Unknown]
  - Chills [Unknown]
  - Influenza [Unknown]
  - Anaemia [Unknown]
  - Hyponatraemia [Unknown]

NARRATIVE: CASE EVENT DATE: 20230101
